FAERS Safety Report 10210411 (Version 3)
Quarter: 2014Q2

REPORT INFORMATION
  Report Type: Spontaneous
  Country: BR (occurrence: BR)
  Receive Date: 20140602
  Receipt Date: 20140612
  Transmission Date: 20141212
  Serious: Yes (Life-Threatening)
  Sender: FDA-Public Use
  Company Number: BR-SA-2014SA071490

PATIENT
  Sex: Female
  Weight: 62 kg

DRUGS (4)
  1. INSULIN GLARGINE [Suspect]
     Indication: PRODUCT USED FOR UNKNOWN INDICATION
     Dosage: DOSE:18 UNIT(S)
     Route: 065
  2. INSULIN GLARGINE [Suspect]
     Indication: PRODUCT USED FOR UNKNOWN INDICATION
     Dosage: DOSE:16 UNIT(S)
     Route: 065
  3. BGSTAR METER [Suspect]
     Indication: PRODUCT USED FOR UNKNOWN INDICATION
     Route: 065
     Dates: start: 20131218
  4. INSULIN LISPRO [Concomitant]
     Dosage: DOSE:17 UNIT(S)

REACTIONS (7)
  - Fall [Unknown]
  - Craniocerebral injury [Recovered/Resolved]
  - Hypoglycaemia [Recovered/Resolved]
  - Headache [Not Recovered/Not Resolved]
  - Nausea [Recovered/Resolved]
  - Vision blurred [Recovered/Resolved]
  - Dizziness [Recovered/Resolved]
